FAERS Safety Report 6965763-X (Version None)
Quarter: 2010Q3

REPORT INFORMATION
  Report Type: 
  Country: None (occurrence: None)
  Receive Date: 20100903
  Receipt Date: 20100630
  Transmission Date: 20110219
  Serious: Yes (Hospitalization)
  Sender: FDA-Public Use
  Company Number: JP-MERCK-1007USA00379

PATIENT
  Age: 74 Year
  Sex: Female

DRUGS (5)
  1. HYZAAR [Suspect]
     Indication: HYPERTENSION
     Route: 048
     Dates: start: 20081101
  2. SHAKUYAKU-KANZO-TO [Suspect]
     Indication: ARTHRALGIA
     Route: 048
  3. AMLODIPINE [Concomitant]
     Indication: HYPERLIPIDAEMIA
     Route: 048
  4. FLUVASTATIN SODIUM [Concomitant]
     Indication: HYPERLIPIDAEMIA
     Route: 048
  5. MELOXICAM [Concomitant]
     Indication: ARTHRALGIA
     Route: 048

REACTIONS (3)
  - HYPOKALAEMIA [None]
  - MYOPATHY [None]
  - PSEUDOALDOSTERONISM [None]
